FAERS Safety Report 8242815-8 (Version None)
Quarter: 2012Q1

REPORT INFORMATION
  Report Type: 
  Country: None (occurrence: None)
  Receive Date: 20120329
  Receipt Date: 20120321
  Transmission Date: 20120608
  Serious: Yes (Hospitalization)
  Sender: FDA-Public Use
  Company Number: PHHY2012IN025687

PATIENT
  Age: 8 Year
  Sex: Male

DRUGS (3)
  1. CEFTRIAXONE [Suspect]
     Indication: DIARRHOEA
  2. CEFTRIAXONE [Suspect]
     Indication: TYPHOID FEVER
     Dosage: 1 G, QD
     Route: 042
  3. OFLOXACIN [Concomitant]
     Indication: TYPHOID FEVER
     Dosage: 100 MG, BID
     Route: 048

REACTIONS (6)
  - APATHY [None]
  - MYOCLONUS [None]
  - TOXIC ENCEPHALOPATHY [None]
  - SOMNOLENCE [None]
  - MENTAL STATUS CHANGES [None]
  - DEHYDRATION [None]
